FAERS Safety Report 7826341-3 (Version None)
Quarter: 2011Q4

REPORT INFORMATION
  Report Type: 
  Country: None (occurrence: None)
  Receive Date: 20111020
  Receipt Date: 20111013
  Transmission Date: 20120403
  Serious: No
  Sender: FDA-Public Use
  Company Number: US-BIOGENIDEC-2011BI039135

PATIENT
  Sex: Female

DRUGS (2)
  1. TYSABRI [Suspect]
     Indication: MULTIPLE SCLEROSIS
     Route: 042
     Dates: start: 20100823
  2. TYSABRI [Suspect]
     Route: 042
     Dates: start: 20080313, end: 20090312

REACTIONS (2)
  - GENERAL SYMPTOM [None]
  - PAIN IN EXTREMITY [None]
